FAERS Safety Report 8381774-4 (Version None)
Quarter: 2012Q2

REPORT INFORMATION
  Report Type: 
  Country: None (occurrence: None)
  Receive Date: 20120524
  Receipt Date: 20120514
  Transmission Date: 20120825
  Serious: Yes (Other)
  Sender: FDA-Public Use
  Company Number: US-AMGEN-USASP2012030198

PATIENT
  Age: 56 Year
  Sex: Female

DRUGS (1)
  1. ENBREL [Suspect]
     Indication: PSORIATIC ARTHROPATHY
     Dosage: 50 MG, 2 TIMES/WK
     Dates: start: 19980101, end: 20120504

REACTIONS (5)
  - PYREXIA [None]
  - PHARYNGEAL OEDEMA [None]
  - MIGRAINE [None]
  - RESPIRATORY ARREST [None]
  - INJECTION SITE LACERATION [None]
